FAERS Safety Report 6387332-5 (Version None)
Quarter: 2009Q3

REPORT INFORMATION
  Report Type: 
  Country: None (occurrence: None)
  Receive Date: 20090930
  Receipt Date: 20090914
  Transmission Date: 20100115
  Serious: Yes (Death, Hospitalization)
  Sender: FDA-Public Use
  Company Number: 2009AL004452

PATIENT
  Age: 29 Year
  Sex: Female
  Weight: 125 kg

DRUGS (14)
  1. DIGOXIN [Suspect]
     Dosage: 0.125MG, DAILY, PO
     Route: 048
  2. LASIX [Concomitant]
  3. K-DUR [Concomitant]
  4. PRINIVIL [Concomitant]
  5. SPIRONOLACTONE [Concomitant]
  6. TEQUIN [Concomitant]
  7. ROBITUSSIN [Concomitant]
  8. COREG [Concomitant]
  9. ZAROXOLYN [Concomitant]
  10. COUMADIN [Concomitant]
  11. LIPITOR [Concomitant]
  12. METOPROLOL [Concomitant]
  13. LISINOPRIL [Concomitant]
  14. KAY CIEL DURA-TABS [Concomitant]

REACTIONS (38)
  - ABDOMINAL PAIN UPPER [None]
  - ASTHENIA [None]
  - BACK PAIN [None]
  - BLOOD CHOLESTEROL INCREASED [None]
  - BLOOD GLUCOSE INCREASED [None]
  - BRONCHITIS [None]
  - CARDIAC FAILURE CONGESTIVE [None]
  - CARDIOACTIVE DRUG LEVEL BELOW THERAPEUTIC [None]
  - CARDIOMYOPATHY [None]
  - CHEST DISCOMFORT [None]
  - CHOLECYSTECTOMY [None]
  - CLAUSTROPHOBIA [None]
  - CONDITION AGGRAVATED [None]
  - DYSPNOEA [None]
  - ECONOMIC PROBLEM [None]
  - FATIGUE [None]
  - FLANK PAIN [None]
  - HAIR GROWTH ABNORMAL [None]
  - IMPLANTABLE DEFIBRILLATOR INSERTION [None]
  - INFERTILITY FEMALE [None]
  - INFLUENZA LIKE ILLNESS [None]
  - INTRACARDIAC THROMBUS [None]
  - LOBAR PNEUMONIA [None]
  - MULTIPLE INJURIES [None]
  - MYALGIA [None]
  - NAUSEA [None]
  - ORTHOPNOEA [None]
  - PALPITATIONS [None]
  - POLYCYSTIC OVARIES [None]
  - PRESYNCOPE [None]
  - RENAL CANCER [None]
  - SLEEP APNOEA SYNDROME [None]
  - SURGERY [None]
  - TUBERCULIN TEST POSITIVE [None]
  - UNEVALUABLE EVENT [None]
  - URINARY INCONTINENCE [None]
  - URINARY TRACT INFECTION [None]
  - VOMITING [None]
